FAERS Safety Report 7427510-7 (Version None)
Quarter: 2011Q2

REPORT INFORMATION
  Report Type: 
  Country: None (occurrence: None)
  Receive Date: 20110420
  Receipt Date: 20110325
  Transmission Date: 20111010
  Serious: No
  Sender: FDA-Public Use
  Company Number: US-B.I. PHARMACEUTICALS,INC./RIDGEFIELD-2011-BP-09279BP

PATIENT
  Age: 69 Year
  Sex: Male
  Weight: 136.4 kg

DRUGS (2)
  1. PRADAXA [Suspect]
     Indication: ATRIAL FIBRILLATION
     Dosage: 300 MG
     Route: 048
     Dates: start: 20110225
  2. COUMADIN [Concomitant]
     Indication: ATRIAL FIBRILLATION
     Route: 048
     Dates: end: 20110201

REACTIONS (3)
  - HEART RATE IRREGULAR [None]
  - PYREXIA [None]
  - INTERNATIONAL NORMALISED RATIO DECREASED [None]
